FAERS Safety Report 8262769-8 (Version None)
Quarter: 2012Q2

REPORT INFORMATION
  Report Type: 
  Country: None (occurrence: None)
  Receive Date: 20120405
  Receipt Date: 20120403
  Transmission Date: 20120825
  Serious: Yes (Other)
  Sender: FDA-Public Use
  Company Number: BR-JNJFOC-20120401662

PATIENT
  Sex: Female

DRUGS (1)
  1. NICORETTE [Suspect]
     Indication: NICOTINE DEPENDENCE
     Route: 048
     Dates: start: 20090101

REACTIONS (2)
  - INCORRECT DRUG ADMINISTRATION DURATION [None]
  - DEPENDENCE [None]
